FAERS Safety Report 23318753 (Version 1)
Quarter: 2023Q4

REPORT INFORMATION
  Report Type: Spontaneous
  Country: US (occurrence: US)
  Receive Date: 20231220
  Receipt Date: 20231220
  Transmission Date: 20240110
  Serious: No
  Sender: FDA-Public Use
  Company Number: US-ELI_LILLY_AND_COMPANY-US202312010396

PATIENT
  Age: 56 Year
  Sex: Female

DRUGS (1)
  1. EMGALITY [Suspect]
     Active Substance: GALCANEZUMAB-GNLM
     Indication: Product used for unknown indication
     Dosage: 120 MG, UNKNOWN
     Route: 065
     Dates: start: 2020

REACTIONS (10)
  - Abdominal discomfort [Unknown]
  - Headache [Unknown]
  - Oropharyngeal pain [Unknown]
  - Cough [Unknown]
  - Nasal congestion [Unknown]
  - Lacrimation increased [Unknown]
  - Ear pain [Unknown]
  - Ear pruritus [Unknown]
  - Pain [Unknown]
  - Body temperature increased [Unknown]

NARRATIVE: CASE EVENT DATE: 20231216
